FAERS Safety Report 17641462 (Version 1)
Quarter: 2020Q2

REPORT INFORMATION
  Report Type: Spontaneous
  Country: CA (occurrence: CA)
  Receive Date: 20200407
  Receipt Date: 20200407
  Transmission Date: 20200713
  Serious: Yes (Hospitalization, Other)
  Sender: FDA-Public Use
  Company Number: CA-ALLERGAN-2014734US

PATIENT
  Sex: Female

DRUGS (10)
  1. DEXAMETHASONE. [Concomitant]
     Active Substance: DEXAMETHASONE
     Indication: ACANTHAMOEBA KERATITIS
     Route: 047
  2. APO-TOBRAMYCIN [Suspect]
     Active Substance: TOBRAMYCIN
     Indication: ACANTHAMOEBA KERATITIS
     Route: 047
  3. MILTEFOSINE [Suspect]
     Active Substance: MILTEFOSINE
     Dosage: 50 MG, BID
     Route: 065
  4. POLIHEXANIDE [Concomitant]
     Active Substance: POLIHEXANIDE
     Indication: ACANTHAMOEBA KERATITIS
     Dosage: 0.02 %, Q1HR
     Route: 047
  5. VORICONAZOLE. [Suspect]
     Active Substance: VORICONAZOLE
     Indication: ACANTHAMOEBA KERATITIS
     Dosage: UNK, Q1HR
     Route: 061
  6. VORICONAZOLE. [Suspect]
     Active Substance: VORICONAZOLE
     Dosage: UNK, BID
     Route: 048
  7. CHLORHEXIDINE [Concomitant]
     Active Substance: CHLORHEXIDINE
     Indication: ACANTHAMOEBA KERATITIS
     Dosage: UNK
     Route: 047
  8. MILTEFOSINE [Suspect]
     Active Substance: MILTEFOSINE
     Indication: ACANTHAMOEBA KERATITIS
     Dosage: 50 MG, TID
     Route: 065
  9. GATIFLOXACIN SESQUIHYDRATE [Suspect]
     Active Substance: GATIFLOXACIN
     Indication: ACANTHAMOEBA KERATITIS
     Dosage: UNK
     Route: 047
  10. PREDNISOLONE ACETATE. [Concomitant]
     Active Substance: PREDNISOLONE ACETATE
     Indication: ACANTHAMOEBA KERATITIS
     Dosage: 1 %, QID
     Route: 047

REACTIONS (4)
  - Decreased appetite [Unknown]
  - Drug ineffective [Unknown]
  - Electrolyte imbalance [Unknown]
  - Treatment noncompliance [Unknown]
